FAERS Safety Report 9551631 (Version 2)
Quarter: 2013Q4

REPORT INFORMATION
  Report Type: Spontaneous
  Country: US (occurrence: US)
  Receive Date: 20130925
  Receipt Date: 20131220
  Transmission Date: 20140711
  Serious: Yes (Death)
  Sender: FDA-Public Use
  Company Number: US-INCYTE CORPORATION-2013IN002146

PATIENT
  Age: 65 Year
  Sex: Male

DRUGS (3)
  1. JAKAFI [Suspect]
     Indication: MYELOFIBROSIS
     Dosage: 10 MG, BID
     Route: 048
     Dates: end: 201305
  2. JAKAFI [Suspect]
     Indication: SPLENOMEGALY
  3. JAKAFI [Suspect]
     Indication: WEIGHT DECREASED

REACTIONS (2)
  - Acute myeloid leukaemia [Fatal]
  - Perirectal abscess [Fatal]
